FAERS Safety Report 8119971-5 (Version None)
Quarter: 2011Q4

REPORT INFORMATION
  Report Type: 
  Country: None (occurrence: None)
  Receive Date: 20111227
  Receipt Date: 20110912
  Transmission Date: 20120403
  Serious: No
  Sender: FDA-Public Use
  Company Number: PHHY2011US40815

PATIENT
  Age: 53 Year
  Sex: Female

DRUGS (14)
  1. ASPIRIN [Concomitant]
  2. WELLBUTRIN SR [Concomitant]
  3. ABILIFY [Concomitant]
  4. ZOMETA [Concomitant]
  5. CALCIUM WITH VITAMIN D (CALCIUM PHOSPHATE, CALCIUM SODIUM LACTATE, ERG [Concomitant]
  6. PROVIGIL [Concomitant]
  7. GILENYA [Suspect]
     Indication: MULTIPLE SCLEROSIS
     Dosage: 0.5 MG, QD, ORAL, 0.5 MG, QOD, ORAL
     Route: 048
     Dates: start: 20110504
  8. GILENYA [Suspect]
     Indication: MULTIPLE SCLEROSIS
     Dosage: 0.5 MG, QD, ORAL, 0.5 MG, QOD, ORAL
     Route: 048
     Dates: start: 20110504
  9. KLONOPIN [Concomitant]
  10. HYDROCHLOROTHIAZIDE [Concomitant]
  11. CELEXA [Concomitant]
  12. CONCERTA [Concomitant]
  13. ZANAFLEX [Concomitant]
  14. ALENDRONATE SODIUM [Concomitant]

REACTIONS (4)
  - DIARRHOEA [None]
  - NAUSEA [None]
  - SOMNOLENCE [None]
  - INAPPROPRIATE SCHEDULE OF DRUG ADMINISTRATION [None]
